FAERS Safety Report 10187764 (Version 1)
Quarter: 2014Q2

REPORT INFORMATION
  Report Type: Spontaneous
  Country: US (occurrence: US)
  Receive Date: 20140522
  Receipt Date: 20140522
  Transmission Date: 20141212
  Serious: No
  Sender: FDA-Public Use
  Company Number: US-SA-2013SA102046

PATIENT
  Age: 75 Year
  Sex: Female

DRUGS (1)
  1. LANTUS [Suspect]
     Indication: TYPE 1 DIABETES MELLITUS
     Dosage: DOSE:-46-52 UNITS DAILY
     Route: 058

REACTIONS (7)
  - Vision blurred [Unknown]
  - Unevaluable event [Unknown]
  - Dizziness [Unknown]
  - Asthenia [Unknown]
  - Blood glucose abnormal [Unknown]
  - Drug hypersensitivity [Unknown]
  - Blood glucose decreased [Unknown]
